FAERS Safety Report 24225030 (Version 2)
Quarter: 2024Q3

REPORT INFORMATION
  Report Type: Report from Study
  Country: NL (occurrence: NL)
  Receive Date: 20240820
  Receipt Date: 20240909
  Transmission Date: 20241016
  Serious: Yes (Other)
  Sender: ABBVIE
  Company Number: NL-ABBVIE-5865602

PATIENT
  Sex: Female

DRUGS (9)
  1. CARBIDOPA\LEVODOPA [Suspect]
     Active Substance: CARBIDOPA\LEVODOPA
     Indication: Parkinson^s disease
     Dosage: MD 15.0 ML; CD 4.5 ML/H; ED 3.0 ML?DURATION TEXT: REMAINS AT 16 HOURS
     Route: 050
     Dates: start: 20240808
  2. CARBIDOPA\LEVODOPA [Suspect]
     Active Substance: CARBIDOPA\LEVODOPA
     Dosage: MD 15.0 ML; CD 4.5 ML/H; ED 3.0 ML?REMAINS AT 16 HOUR
     Route: 050
     Dates: start: 20240116, end: 20240425
  3. CARBIDOPA\LEVODOPA [Suspect]
     Active Substance: CARBIDOPA\LEVODOPA
     Route: 050
     Dates: start: 20210413
  4. CARBIDOPA\LEVODOPA [Suspect]
     Active Substance: CARBIDOPA\LEVODOPA
     Dosage: MD 15.0 ML; CD 4.5 ML/H; ED 3.0 ML?REMAINS AT 16 HOUR
     Route: 050
     Dates: start: 20240425, end: 20240808
  5. POLYETHYLENE GLYCOLS [Concomitant]
     Active Substance: POLYETHYLENE GLYCOLS
     Indication: Product used for unknown indication
  6. ROPINIROLE [Concomitant]
     Active Substance: ROPINIROLE
     Indication: Product used for unknown indication
     Dosage: 8 MILLIGRAM?MGA
  7. CARBIDOPA LEVODOPA [Concomitant]
     Active Substance: CARBIDOPA\LEVODOPA
     Indication: Parkinson^s disease
     Dosage: 200/50 MG?MGA
  8. LORAZEPAM [Concomitant]
     Active Substance: LORAZEPAM
     Indication: Product used for unknown indication
     Dosage: FORM STRENGTH: 1 MILLIGRAM?FREQUENCY TEXT: IF NECESSARY 4 TIMES A DAY
  9. BENSERAZIDE HYDROCHLORIDE\LEVODOPA [Concomitant]
     Active Substance: BENSERAZIDE HYDROCHLORIDE\LEVODOPA
     Indication: Product used for unknown indication
     Dosage: 100/25 MG?FREQUENCY TEXT: IF NECESSARY

REACTIONS (23)
  - Unresponsive to stimuli [Not Recovered/Not Resolved]
  - Stoma site erythema [Not Recovered/Not Resolved]
  - Device occlusion [Recovered/Resolved]
  - Stoma site discharge [Not Recovered/Not Resolved]
  - Fear [Not Recovered/Not Resolved]
  - Stoma site reaction [Not Recovered/Not Resolved]
  - Unevaluable event [Not Recovered/Not Resolved]
  - Daydreaming [Not Recovered/Not Resolved]
  - Weight decreased [Not Recovered/Not Resolved]
  - Device issue [Unknown]
  - Dyskinesia [Not Recovered/Not Resolved]
  - Unevaluable event [Not Recovered/Not Resolved]
  - Freezing phenomenon [Not Recovered/Not Resolved]
  - Gait disturbance [Not Recovered/Not Resolved]
  - On and off phenomenon [Not Recovered/Not Resolved]
  - Fatigue [Not Recovered/Not Resolved]
  - Stress [Not Recovered/Not Resolved]
  - Abnormal dreams [Unknown]
  - Hyperhidrosis [Not Recovered/Not Resolved]
  - Stoma site infection [Not Recovered/Not Resolved]
  - Therapeutic product effect incomplete [Not Recovered/Not Resolved]
  - Malaise [Not Recovered/Not Resolved]
  - Stoma complication [Not Recovered/Not Resolved]
